FAERS Safety Report 24664807 (Version 1)
Quarter: 2024Q4

REPORT INFORMATION
  Report Type: Spontaneous
  Country: IT (occurrence: IT)
  Receive Date: 20241126
  Receipt Date: 20241126
  Transmission Date: 20250114
  Serious: Yes (Hospitalization)
  Sender: SANOFI AVENTIS
  Company Number: None

PATIENT
  Age: 68 Year
  Sex: Male

DRUGS (2)
  1. AUBAGIO [Suspect]
     Active Substance: TERIFLUNOMIDE
     Indication: Relapsing-remitting multiple sclerosis
     Dosage: 14 MG, QD
     Route: 048
     Dates: start: 201806, end: 20240627
  2. ELIQUIS [Concomitant]
     Active Substance: APIXABAN
     Indication: Venous thrombosis
     Dosage: 1 DF, QD
     Route: 048
     Dates: start: 202311

REACTIONS (4)
  - Genital ulceration [Recovering/Resolving]
  - Joint injury [Recovering/Resolving]
  - Conjunctivitis [Recovering/Resolving]
  - Aphthous ulcer [Recovering/Resolving]

NARRATIVE: CASE EVENT DATE: 20240601
